FAERS Safety Report 10273850 (Version 1)
Quarter: 2014Q2

REPORT INFORMATION
  Report Type: Spontaneous
  Country: US (occurrence: None)
  Receive Date: 20140630
  Receipt Date: 20140630
  Transmission Date: 20141212
  Serious: Yes (Other)
  Sender: FDA-Public Use
  Company Number: None

PATIENT
  Age: 51 Year
  Sex: Female
  Weight: 147.42 kg

DRUGS (1)
  1. LOSARTAN POTASSIUM TABLETS, 50 MG [Suspect]
     Indication: HYPERTENSION
     Dosage: 50 MG ONE QD  P.O.
     Route: 048
     Dates: start: 20140304, end: 20140318

REACTIONS (1)
  - Myalgia [None]
